FAERS Safety Report 17260772 (Version 3)
Quarter: 2020Q1

REPORT INFORMATION
  Report Type: Report from Study
  Country: DK (occurrence: DK)
  Receive Date: 20200113
  Receipt Date: 20200306
  Transmission Date: 20200409
  Serious: Yes (Hospitalization)
  Sender: FDA-Public Use
  Company Number: DK-ROCHE-2518845

PATIENT
  Age: 70 Year
  Sex: Male
  Weight: 86 kg

DRUGS (13)
  1. DOMPERIDON [DOMPERIDONE] [Concomitant]
     Indication: NAUSEA
     Route: 048
     Dates: start: 20191220, end: 20191223
  2. VENETOCLAX. [Suspect]
     Active Substance: VENETOCLAX
     Indication: CHRONIC LYMPHOCYTIC LEUKAEMIA
     Dosage: 20 MG DAILY DURING CYCLE 1, DAY 22-28; 50 MG DAILY DURING CYCLE 2, DAY 1-7; 100 MG DAILY DURING CYCL
     Route: 048
     Dates: start: 20150922
  3. BERODUAL [Concomitant]
     Active Substance: FENOTEROL HYDROBROMIDE\IPRATROPIUM BROMIDE
     Indication: BRONCHOSPASM
     Dosage: DOSE: 1 UNIT
     Route: 065
     Dates: start: 20191220, end: 20191223
  4. METOPROLOL. [Concomitant]
     Active Substance: METOPROLOL
     Dosage: 50 TABLET
     Route: 048
  5. QUETIAPIN [Concomitant]
     Active Substance: QUETIAPINE
     Route: 048
     Dates: start: 20150915
  6. MOMETASONE FUROATE. [Concomitant]
     Active Substance: MOMETASONE FUROATE
     Indication: RHINITIS ALLERGIC
     Route: 050
     Dates: start: 20170616
  7. OBINUTUZUMAB. [Suspect]
     Active Substance: OBINUTUZUMAB
     Indication: CHRONIC LYMPHOCYTIC LEUKAEMIA
     Dosage: 100 MG OR 1000 MG, DEPENDING ON SPLITTING RULES, AT CYCLE 1, DAY 1 (IF 100 MG WAS RECEIVED ON DAY 1,
     Route: 042
     Dates: start: 20150901
  8. PARACETAMOL [Concomitant]
     Active Substance: ACETAMINOPHEN
     Indication: TENSION HEADACHE
     Route: 048
  9. ACETYLSALICYLSYRE [Concomitant]
     Active Substance: ASPIRIN
     Indication: HEADACHE
     Dosage: 1 TABLET
     Route: 048
  10. SIMVASTATIN. [Concomitant]
     Active Substance: SIMVASTATIN
     Indication: HYPERCHOLESTEROLAEMIA
     Route: 048
     Dates: start: 20170829
  11. CLOBETASOL PROPIONATE. [Concomitant]
     Active Substance: CLOBETASOL PROPIONATE
     Route: 062
     Dates: start: 20180103
  12. DUSPATALIN RETARD [Concomitant]
     Indication: ABDOMINAL PAIN
     Route: 048
     Dates: start: 20190611
  13. VALDOXAN [Concomitant]
     Active Substance: AGOMELATINE
     Route: 048
     Dates: start: 20150915

REACTIONS (1)
  - Pneumonia streptococcal [Recovered/Resolved]

NARRATIVE: CASE EVENT DATE: 20191220
